FAERS Safety Report 19364080 (Version 2)
Quarter: 2021Q2

REPORT INFORMATION
  Report Type: Spontaneous
  Country: US (occurrence: US)
  Receive Date: 20210603
  Receipt Date: 20210616
  Transmission Date: 20210717
  Serious: Yes (Hospitalization)
  Sender: FDA-Public Use
  Company Number: US-TEVA-2021-US-1917858

PATIENT
  Age: 71 Year
  Sex: Female

DRUGS (3)
  1. AMANTADINE. [Suspect]
     Active Substance: AMANTADINE HYDROCHLORIDE
     Indication: FATIGUE
     Route: 065
  2. AMANTADINE. [Suspect]
     Active Substance: AMANTADINE HYDROCHLORIDE
     Indication: MULTIPLE SCLEROSIS
  3. NITROFURANTOIN. [Suspect]
     Active Substance: NITROFURANTOIN
     Indication: URINARY TRACT INFECTION
     Dosage: 200 MILLIGRAM DAILY; TOOK OVER 3 MONTHS
     Route: 065

REACTIONS (7)
  - Tubulointerstitial nephritis [Recovering/Resolving]
  - Toxicity to various agents [Unknown]
  - Granuloma [Recovering/Resolving]
  - Hallucination, visual [Recovered/Resolved]
  - Acute kidney injury [Recovering/Resolving]
  - Product prescribing error [Unknown]
  - Product administration error [Unknown]
